FAERS Safety Report 16143959 (Version 16)
Quarter: 2020Q2

REPORT INFORMATION
  Report Type: Report from Study
  Country: US (occurrence: US)
  Receive Date: 20190401
  Receipt Date: 20200428
  Transmission Date: 20200713
  Serious: Yes (Hospitalization)
  Sender: FDA-Public Use
  Company Number: US-ACTELION-A-US2018-181818

PATIENT
  Age: 43 Year
  Sex: Female
  Weight: 86.62 kg

DRUGS (8)
  1. VELETRI [Suspect]
     Active Substance: EPOPROSTENOL
     Dosage: 17 NG/KG, PER MIN
     Route: 042
  2. VELETRI [Suspect]
     Active Substance: EPOPROSTENOL
     Dosage: 12 NG/KG, PER MIN
     Route: 042
  3. VELETRI [Suspect]
     Active Substance: EPOPROSTENOL
     Dosage: 20 NG/KG, PER MIN
     Route: 042
  4. VELETRI [Suspect]
     Active Substance: EPOPROSTENOL
     Dosage: 14 NG/KG, PER MIN
     Route: 042
  5. VELETRI [Suspect]
     Active Substance: EPOPROSTENOL
     Dosage: 21 NG/KG, PER MIN
     Route: 042
  6. ADEMPAS [Concomitant]
     Active Substance: RIOCIGUAT
  7. VELETRI [Suspect]
     Active Substance: EPOPROSTENOL
     Indication: PULMONARY ARTERIAL HYPERTENSION
     Dosage: 15 NG/KG, PER MIN
     Route: 042
  8. VELETRI [Suspect]
     Active Substance: EPOPROSTENOL
     Dosage: 12.5 NG/KG, PER MIN
     Route: 042

REACTIONS (30)
  - Pyrexia [Recovered/Resolved]
  - Musculoskeletal stiffness [Recovered/Resolved]
  - Erythema [Unknown]
  - Fatigue [Unknown]
  - Bone pain [Unknown]
  - Device related infection [Unknown]
  - Chills [Recovered/Resolved]
  - Arthralgia [Unknown]
  - Vomiting [Recovered/Resolved]
  - White blood cell count decreased [Recovered/Resolved]
  - Device failure [Recovered/Resolved]
  - Urticaria [Unknown]
  - Pulmonary arterial hypertension [Not Recovered/Not Resolved]
  - Bacterial infection [Unknown]
  - Drug withdrawal maintenance therapy [Unknown]
  - Catheter site discharge [Unknown]
  - Pruritus [Unknown]
  - Infection [Unknown]
  - Disease progression [Not Recovered/Not Resolved]
  - Staphylococcal infection [Recovered/Resolved]
  - Malaise [Unknown]
  - Dermatitis contact [Unknown]
  - Vascular access complication [Unknown]
  - Catheter management [Recovered/Resolved]
  - Swelling [Recovered/Resolved]
  - Chest pain [Unknown]
  - Myalgia [Recovered/Resolved]
  - Device related sepsis [Recovered/Resolved]
  - Pneumonia [Unknown]
  - Pain in extremity [Unknown]

NARRATIVE: CASE EVENT DATE: 20181106
